FAERS Safety Report 4383017-5 (Version None)
Quarter: 2004Q2

REPORT INFORMATION
  Report Type: 
  Country: None (occurrence: None)
  Receive Date: 20040526
  Receipt Date: 20040325
  Transmission Date: 20050107
  Serious: Yes (Hospitalization)
  Sender: FDA-Public Use
  Company Number: US_010668260

PATIENT
  Age: 37 Year
  Sex: Male
  Weight: 144 kg

DRUGS (1)
  1. ZYPREXA [Suspect]
     Indication: SCHIZOAFFECTIVE DISORDER
     Dosage: 20 MG/1 DAY

REACTIONS (3)
  - DIARRHOEA [None]
  - SCHIZOPHRENIA [None]
  - WEIGHT INCREASED [None]
